FAERS Safety Report 4349345-4 (Version None)
Quarter: 2004Q2

REPORT INFORMATION
  Report Type: 
  Country: None (occurrence: None)
  Receive Date: 20040426
  Receipt Date: 20040414
  Transmission Date: 20050107
  Serious: Yes (Hospitalization)
  Sender: FDA-Public Use
  Company Number: 2004-BP-01698BP

PATIENT
  Age: 86 Year
  Sex: Female

DRUGS (5)
  1. COMBIVENT [Suspect]
     Indication: CHRONIC OBSTRUCTIVE AIRWAYS DISEASE
     Dosage: 4 PUFF (SEE TEXT, 2 PUFFS BID), IH
     Route: 055
     Dates: start: 20040205, end: 20040224
  2. FOSAMAX [Suspect]
  3. FLOVENT [Concomitant]
  4. PREDNISNE (PREDNISONE) [Concomitant]
  5. ANTIBIOTICS (SPECIFICS UNKNOWN) (ANTIBIOTICS) [Concomitant]

REACTIONS (8)
  - ABDOMINAL DISCOMFORT [None]
  - ASTHENIA [None]
  - BLOOD PRESSURE ORTHOSTATIC DECREASED [None]
  - DIARRHOEA [None]
  - DIZZINESS [None]
  - MUSCULOSKELETAL PAIN [None]
  - NAUSEA [None]
  - VOMITING [None]
